FAERS Safety Report 14332196 (Version 2)
Quarter: 2018Q1

REPORT INFORMATION
  Report Type: Spontaneous
  Country: AT (occurrence: AT)
  Receive Date: 20171228
  Receipt Date: 20180102
  Transmission Date: 20180509
  Serious: Yes (Hospitalization)
  Sender: FDA-Public Use
  Company Number: AT-JNJFOC-20171000958

PATIENT
  Age: 67 Year
  Sex: Female

DRUGS (20)
  1. RISPERDAL [Suspect]
     Active Substance: RISPERIDONE
     Indication: PRODUCT USED FOR UNKNOWN INDICATION
     Route: 048
     Dates: start: 20170626, end: 20170629
  2. PRAXITEN [Concomitant]
     Active Substance: OXAZEPAM
     Route: 065
     Dates: start: 20170614, end: 20170616
  3. PRAXITEN [Concomitant]
     Active Substance: OXAZEPAM
     Route: 065
     Dates: start: 20170621, end: 20170625
  4. RISPERDAL [Suspect]
     Active Substance: RISPERIDONE
     Indication: PRODUCT USED FOR UNKNOWN INDICATION
     Route: 048
     Dates: start: 20170630, end: 20170630
  5. PANTOLOC [Concomitant]
     Active Substance: PANTOPRAZOLE SODIUM
     Route: 065
     Dates: start: 20170614, end: 20170707
  6. SELEXID (PEVMECILLINAM HYDROCHLORIDE) [Concomitant]
     Active Substance: AMDINOCILLIN PIVOXIL HYDROCHLORIDE
     Route: 048
     Dates: start: 20170627, end: 20170630
  7. RISPERDAL [Suspect]
     Active Substance: RISPERIDONE
     Indication: PRODUCT USED FOR UNKNOWN INDICATION
     Route: 048
     Dates: start: 20170705, end: 20170705
  8. RISPERDAL [Suspect]
     Active Substance: RISPERIDONE
     Indication: PRODUCT USED FOR UNKNOWN INDICATION
     Route: 048
     Dates: start: 20170706, end: 20170706
  9. PRAXITEN [Concomitant]
     Active Substance: OXAZEPAM
     Route: 065
     Dates: start: 20170618, end: 20170618
  10. RISPERDAL [Suspect]
     Active Substance: RISPERIDONE
     Indication: PRODUCT USED FOR UNKNOWN INDICATION
     Route: 048
     Dates: start: 20170703, end: 20170704
  11. PRAXITEN [Concomitant]
     Active Substance: OXAZEPAM
     Route: 065
     Dates: start: 20170619, end: 20170620
  12. PRAXITEN [Concomitant]
     Active Substance: OXAZEPAM
     Route: 065
     Dates: start: 20170701, end: 20170704
  13. LOVENOX [Concomitant]
     Active Substance: ENOXAPARIN SODIUM
     Route: 058
     Dates: start: 20170621, end: 20170629
  14. PRAXITEN [Concomitant]
     Active Substance: OXAZEPAM
     Route: 065
     Dates: start: 20170626, end: 20170630
  15. RISPERDAL [Suspect]
     Active Substance: RISPERIDONE
     Indication: PRODUCT USED FOR UNKNOWN INDICATION
     Route: 048
  16. GLUCOPHAGE [Concomitant]
     Active Substance: METFORMIN HYDROCHLORIDE
     Route: 048
     Dates: start: 20170614, end: 20170703
  17. PRAXITEN [Concomitant]
     Active Substance: OXAZEPAM
     Route: 065
     Dates: start: 20170617, end: 20170617
  18. PRAXITEN [Concomitant]
     Active Substance: OXAZEPAM
     Route: 065
     Dates: start: 20170705, end: 20170706
  19. MOLAXOLE [Concomitant]
     Active Substance: POLYETHYLENE GLYCOL 3350\POTASSIUM CHLORIDE\SODIUM BICARBONATE\SODIUM CHLORIDE
     Route: 048
     Dates: start: 20170614, end: 20170707
  20. RISPERDAL [Suspect]
     Active Substance: RISPERIDONE
     Indication: PRODUCT USED FOR UNKNOWN INDICATION
     Route: 048
     Dates: start: 20170701, end: 20170702

REACTIONS (2)
  - Neuroleptic malignant syndrome [Recovered/Resolved]
  - Catatonia [Recovered/Resolved]

NARRATIVE: CASE EVENT DATE: 20170627
